FAERS Safety Report 5866017-5 (Version None)
Quarter: 2008Q3

REPORT INFORMATION
  Report Type: 
  Country: None (occurrence: None)
  Receive Date: 20080829
  Receipt Date: 20080825
  Transmission Date: 20090109
  Serious: Yes (Death)
  Sender: FDA-Public Use
  Company Number: ZA-GENENTECH-263520

PATIENT
  Sex: Female
  Weight: 56 kg

DRUGS (2)
  1. BEVACIZUMAB [Suspect]
     Indication: BREAST CANCER METASTATIC
     Dosage: 840 MG, Q3W
     Route: 042
     Dates: start: 20080103
  2. XELODA [Concomitant]
     Indication: BREAST CANCER METASTATIC
     Dosage: 3000 MG, UNK
     Dates: start: 20080103

REACTIONS (1)
  - GASTROINTESTINAL PERFORATION [None]
